FAERS Safety Report 23849417 (Version 1)
Quarter: 2024Q2

REPORT INFORMATION
  Report Type: Spontaneous
  Country: US (occurrence: US)
  Receive Date: 20240513
  Receipt Date: 20240513
  Transmission Date: 20240716
  Serious: Yes (Other)
  Sender: FDA-Public Use
  Company Number: US-Crown Laboratories, Inc.-2156914

PATIENT
  Age: 87 Year
  Sex: Female
  Weight: 58.182 kg

DRUGS (2)
  1. ALACORT [Suspect]
     Active Substance: HYDROCORTISONE
     Indication: Off label use
     Route: 054
     Dates: start: 20240419
  2. FAMOTIDINE [Concomitant]
     Active Substance: FAMOTIDINE

REACTIONS (9)
  - Anorectal discomfort [Unknown]
  - Dysuria [Not Recovered/Not Resolved]
  - Erythema [Not Recovered/Not Resolved]
  - Constipation [Not Recovered/Not Resolved]
  - Tongue discomfort [Not Recovered/Not Resolved]
  - Application site pain [Not Recovered/Not Resolved]
  - Nausea [Not Recovered/Not Resolved]
  - Application site acne [Not Recovered/Not Resolved]
  - Anal erythema [Not Recovered/Not Resolved]

NARRATIVE: CASE EVENT DATE: 20240420
